FAERS Safety Report 5534950-X (Version None)
Quarter: 2007Q4

REPORT INFORMATION
  Report Type: 
  Country: None (occurrence: None)
  Receive Date: 20071205
  Receipt Date: 20071128
  Transmission Date: 20080405
  Serious: No
  Sender: FDA-Public Use
  Company Number: US-BOEHRINGER INGELHEIM PHARMACEUTICALS, INC.-2007-BP-25334BP

PATIENT
  Sex: Female

DRUGS (15)
  1. SPIRIVA [Suspect]
     Indication: CHRONIC OBSTRUCTIVE PULMONARY DISEASE
     Route: 055
     Dates: start: 20060101
  2. ADVAIR DISKUS 100/50 [Concomitant]
     Indication: CHRONIC OBSTRUCTIVE PULMONARY DISEASE
  3. PROAIR HFA [Concomitant]
     Indication: CHRONIC OBSTRUCTIVE PULMONARY DISEASE
  4. PREMPRO [Concomitant]
  5. ULTRACET [Concomitant]
     Indication: ARTHRALGIA
  6. PLAVIX [Concomitant]
     Indication: CARDIAC DISORDER
  7. SINGULAIR [Concomitant]
     Indication: CHRONIC OBSTRUCTIVE PULMONARY DISEASE
  8. POTASSIUM CHLORIDE [Concomitant]
  9. MIRAPEX [Concomitant]
     Indication: RESTLESS LEGS SYNDROME
  10. MUCINEX [Concomitant]
  11. ALPRAZOLAM [Concomitant]
     Indication: ANXIETY
  12. CLARITIN [Concomitant]
  13. NEXIUM [Concomitant]
     Indication: GASTROOESOPHAGEAL REFLUX DISEASE
  14. HYDROCHLOROTHIAZIDE [Concomitant]
     Indication: HYPERTENSION
  15. BONIVA [Concomitant]
     Indication: OSTEOPOROSIS

REACTIONS (1)
  - DRUG INEFFECTIVE [None]
